FAERS Safety Report 14906188 (Version 5)
Quarter: 2018Q3

REPORT INFORMATION
  Report Type: Spontaneous
  Country: US (occurrence: US)
  Receive Date: 20180517
  Receipt Date: 20180911
  Transmission Date: 20181010
  Serious: Yes (Hospitalization, Other)
  Sender: FDA-Public Use
  Company Number: US-SA-2018SA118400

PATIENT
  Age: 63 Year
  Sex: Male

DRUGS (3)
  1. LANTUS SOLOSTAR [Suspect]
     Active Substance: INSULIN GLARGINE
     Indication: TYPE 2 DIABETES MELLITUS
     Dosage: 55 IU, HS
     Route: 051
  2. TOUJEO [Suspect]
     Active Substance: INSULIN GLARGINE
     Indication: DIABETES MELLITUS
     Dosage: 55 IU, HS
     Route: 065
  3. NOVOLOG [Concomitant]
     Active Substance: INSULIN ASPART
     Dosage: UNK UNK,UNK
     Route: 065

REACTIONS (12)
  - Dehydration [Recovered/Resolved]
  - Blood glucose increased [Unknown]
  - Drug dose omission [Unknown]
  - Renal failure [Recovered/Resolved]
  - Foot deformity [Recovered/Resolved]
  - Disability [Unknown]
  - Neuropathy peripheral [Unknown]
  - Infection [Recovering/Resolving]
  - Syncope [Recovered/Resolved]
  - Product supply issue [Unknown]
  - Cough [Unknown]
  - Renal transplant [Unknown]

NARRATIVE: CASE EVENT DATE: 2011
